FAERS Safety Report 10331783 (Version 1)
Quarter: 2014Q3

REPORT INFORMATION
  Report Type: Spontaneous
  Country: IN (occurrence: IN)
  Receive Date: 20140722
  Receipt Date: 20140722
  Transmission Date: 20150326
  Serious: Yes (Other)
  Sender: FDA-Public Use
  Company Number: PHHY2014IN088698

PATIENT
  Age: 24 Year
  Sex: Female

DRUGS (6)
  1. FENTANYL. [Suspect]
     Active Substance: FENTANYL
     Indication: SPINAL ANAESTHESIA
     Dosage: 25 UG, UNK
  2. LASIX [Suspect]
     Active Substance: FUROSEMIDE
     Dosage: 20 MG, UNK
  3. EPHEDRINE [Concomitant]
     Active Substance: EPHEDRINE
     Route: 042
  4. CARVEDILOL. [Suspect]
     Active Substance: CARVEDILOL
     Dosage: 3.125 MG, UNK
  5. BUPIVACAINE [Suspect]
     Active Substance: BUPIVACAINE
     Indication: SPINAL ANAESTHESIA
     Dosage: 1.2 ML, UNK
  6. DOPAMINE [Concomitant]
     Active Substance: DOPAMINE\DOPAMINE HYDROCHLORIDE
     Route: 042

REACTIONS (3)
  - Foetal distress syndrome [Unknown]
  - Maternal exposure during pregnancy [Unknown]
  - Premature delivery [Unknown]
